FAERS Safety Report 8885796 (Version 2)
Quarter: 2012Q4

REPORT INFORMATION
  Report Type: 
  Country: CA (occurrence: CA)
  Receive Date: 20121101
  Receipt Date: 20121130
  Transmission Date: 20130627
  Serious: Yes (Other)
  Sender: FDA-Public Use
  Company Number: PHMT2007CA01124

PATIENT
  Sex: Female

DRUGS (2)
  1. SANDOSTATIN LAR [Suspect]
     Indication: CARCINOID SYNDROME
     Dosage: 30 mg, QW2
     Route: 030
     Dates: start: 20061107, end: 20070410
  2. SANDOSTATIN [Suspect]
     Route: 058

REACTIONS (6)
  - Haematochezia [Unknown]
  - Carcinoid crisis [Unknown]
  - Needle issue [Unknown]
  - Diarrhoea [Unknown]
  - Flushing [Unknown]
  - Drug ineffective [Unknown]
